FAERS Safety Report 15415085 (Version 1)
Quarter: 2018Q3

REPORT INFORMATION
  Report Type: Report from Study
  Country: None (occurrence: CA)
  Receive Date: 20180921
  Receipt Date: 20180921
  Transmission Date: 20181010
  Serious: Yes (Other)
  Sender: FDA-Public Use
  Company Number: CA-ABBVIE-15K-028-1330448-00

PATIENT
  Sex: Female

DRUGS (2)
  1. HUMIRA [Suspect]
     Active Substance: ADALIMUMAB
     Indication: CROHN^S DISEASE
     Route: 058
     Dates: start: 20120411
  2. ENTOCORT [Suspect]
     Active Substance: BUDESONIDE
     Indication: FREQUENT BOWEL MOVEMENTS
     Route: 065

REACTIONS (14)
  - Abdominal pain lower [Unknown]
  - Nausea [Not Recovered/Not Resolved]
  - Postoperative adhesion [Recovered/Resolved]
  - Wound infection [Unknown]
  - Abdominal pain [Recovered/Resolved]
  - Crohn^s disease [Unknown]
  - Intestinal resection [Unknown]
  - Fatigue [Unknown]
  - C-reactive protein abnormal [Not Recovered/Not Resolved]
  - Malaise [Unknown]
  - Inflammatory bowel disease [Unknown]
  - Frequent bowel movements [Recovering/Resolving]
  - Postoperative ileus [Recovered/Resolved]
  - Nausea [Recovered/Resolved]

NARRATIVE: CASE EVENT DATE: 2014
